FAERS Safety Report 5146442-0 (Version None)
Quarter: 2006Q4

REPORT INFORMATION
  Report Type: 
  Country: None (occurrence: None)
  Receive Date: 20061102
  Receipt Date: 20061020
  Transmission Date: 20070319
  Serious: Yes (Death, Hospitalization)
  Sender: FDA-Public Use
  Company Number: 2006078285

PATIENT
  Age: 74 Year
  Sex: Male
  Weight: 79.5 kg

DRUGS (10)
  1. SUTENT [Suspect]
     Indication: RENAL CELL CARCINOMA STAGE UNSPECIFIED
     Dosage: 50 MG (50 MG, ONC DAILY FOR 28 DAYS), ORAL
     Route: 048
     Dates: start: 20060202, end: 20060608
  2. LIPITOR [Concomitant]
  3. HUMULIN N [Concomitant]
  4. HUMULIN R [Concomitant]
  5. CIPROFLOXACIN [Concomitant]
  6. FLUCONAZOLE [Concomitant]
  7. VANCOMYCIN [Concomitant]
  8. SYNTHROID [Concomitant]
  9. DAPTOMYCIN (DAPTOMYCIN) [Concomitant]
  10. MORPHINE [Concomitant]

REACTIONS (15)
  - BACTERAEMIA [None]
  - BLOOD ALBUMIN DECREASED [None]
  - BLOOD THYROID STIMULATING HORMONE INCREASED [None]
  - BRAIN MASS [None]
  - COAGULOPATHY [None]
  - DISEASE PROGRESSION [None]
  - HAEMOGLOBIN DECREASED [None]
  - HYPOTENSION [None]
  - HYPOTHYROIDISM [None]
  - INTERNATIONAL NORMALISED RATIO INCREASED [None]
  - MENTAL STATUS CHANGES [None]
  - NUCLEAR MAGNETIC RESONANCE IMAGING BRAIN ABNORMAL [None]
  - PNEUMONIA [None]
  - THROMBOCYTOPENIA [None]
  - URINARY TRACT INFECTION [None]
